FAERS Safety Report 21884989 (Version 2)
Quarter: 2023Q1

REPORT INFORMATION
  Report Type: Spontaneous
  Country: IN (occurrence: IN)
  Receive Date: 20230119
  Receipt Date: 20230209
  Transmission Date: 20230418
  Serious: Yes (Other)
  Sender: FDA-Public Use
  Company Number: IN-PFIZER INC-PV202300008819

PATIENT
  Age: 68 Year
  Sex: Male

DRUGS (2)
  1. DACOMITINIB [Suspect]
     Active Substance: DACOMITINIB
     Indication: Lung adenocarcinoma
     Dosage: 30 MG, 1X/DAY
     Route: 048
     Dates: start: 20220405
  2. DACOMITINIB [Suspect]
     Active Substance: DACOMITINIB
     Dosage: 30 MG, 1X/DAY
     Dates: start: 20220406

REACTIONS (16)
  - Carcinoembryonic antigen increased [Unknown]
  - Blood pressure increased [Unknown]
  - Diarrhoea [Recovered/Resolved]
  - Mucosal inflammation [Unknown]
  - Rash [Not Recovered/Not Resolved]
  - Ocular hyperaemia [Recovered/Resolved]
  - Dry skin [Not Recovered/Not Resolved]
  - Blood alkaline phosphatase increased [Unknown]
  - Anxiety [Unknown]
  - Pruritus [Not Recovered/Not Resolved]
  - Burning sensation [Not Recovered/Not Resolved]
  - Paronychia [Not Recovered/Not Resolved]
  - Nail bed bleeding [Not Recovered/Not Resolved]
  - Weight decreased [Not Recovered/Not Resolved]
  - Mouth ulceration [Recovered/Resolved]
  - Stomatitis [Recovered/Resolved]

NARRATIVE: CASE EVENT DATE: 20220101
